FAERS Safety Report 12471718 (Version 1)
Quarter: 2016Q2

REPORT INFORMATION
  Report Type: Spontaneous
  Country: US (occurrence: None)
  Receive Date: 20160615
  Receipt Date: 20160615
  Transmission Date: 20160815
  Serious: Yes (Hospitalization)
  Sender: FDA-Public Use
  Company Number: None

PATIENT
  Age: 60 Year
  Sex: Male
  Weight: 113.1 kg

DRUGS (12)
  1. COUMADIN [Suspect]
     Active Substance: WARFARIN SODIUM
     Indication: ATRIAL FIBRILLATION
     Dosage: 15 MG MON, WED  PO??CHRONIC
     Route: 048
  2. COUMADIN [Suspect]
     Active Substance: WARFARIN SODIUM
     Indication: ATRIAL FIBRILLATION
     Dosage: 10MG TTHSSF PO?CHRONIC
     Route: 048
  3. PLAQUENIL [Concomitant]
     Active Substance: HYDROXYCHLOROQUINE SULFATE
  4. GLUCOPHAGE [Concomitant]
     Active Substance: METFORMIN HYDROCHLORIDE
  5. THERAGRAN [Concomitant]
     Active Substance: VITAMINS
  6. NEXIUM [Concomitant]
     Active Substance: ESOMEPRAZOLE MAGNESIUM
  7. COLACE [Concomitant]
     Active Substance: DOCUSATE SODIUM
  8. ZESTRIL [Concomitant]
     Active Substance: LISINOPRIL
  9. CARTIA XT [Concomitant]
     Active Substance: DILTIAZEM HYDROCHLORIDE
  10. TAMBOCOR [Concomitant]
     Active Substance: FLECAINIDE ACETATE
  11. MVI [Concomitant]
     Active Substance: VITAMINS
  12. ARAVA [Concomitant]
     Active Substance: LEFLUNOMIDE

REACTIONS (3)
  - Pain [None]
  - International normalised ratio increased [None]
  - Haematoma [None]

NARRATIVE: CASE EVENT DATE: 20151219
